FAERS Safety Report 6093818-3 (Version None)
Quarter: 2009Q1

REPORT INFORMATION
  Report Type: 
  Country: None (occurrence: None)
  Receive Date: 20090223
  Receipt Date: 20090223
  Transmission Date: 20090719
  Serious: Yes (Hospitalization, Other)
  Sender: FDA-Public Use
  Company Number: None

PATIENT
  Age: 45 Year
  Sex: Male
  Weight: 99.7913 kg

DRUGS (2)
  1. CLINDAMYCIN HCL [Suspect]
     Indication: ENDODONTIC PROCEDURE
     Dosage: 1 CAPSULE EVERY 6 HOURS 30 DAYS
     Dates: start: 20081009, end: 20081019
  2. CLINDAMYCIN HCL [Suspect]
     Indication: TOOTH ABSCESS
     Dosage: 1 CAPSULE EVERY 6 HOURS 30 DAYS
     Dates: start: 20081009, end: 20081019

REACTIONS (5)
  - ANAL PRURITUS [None]
  - DRUG INEFFECTIVE [None]
  - FEAR [None]
  - FRUSTRATION [None]
  - TINEA VERSICOLOUR [None]
